FAERS Safety Report 8547441-9 (Version None)
Quarter: 2012Q3

REPORT INFORMATION
  Report Type: 
  Country: None (occurrence: None)
  Receive Date: 20120727
  Receipt Date: 20120416
  Transmission Date: 20120928
  Serious: No
  Sender: FDA-Public Use
  Company Number: US-ASTRAZENECA-2012SE24930

PATIENT
  Age: 23 Year
  Sex: Female
  Weight: 63.5 kg

DRUGS (2)
  1. BUSPAR [Concomitant]
  2. SEROQUEL XR [Suspect]
     Indication: BIPOLAR DISORDER
     Route: 048
     Dates: start: 20100101

REACTIONS (8)
  - DEPRESSED MOOD [None]
  - INTENTIONAL DRUG MISUSE [None]
  - FATIGUE [None]
  - IMPAIRED WORK ABILITY [None]
  - MALAISE [None]
  - FEELING ABNORMAL [None]
  - INSOMNIA [None]
  - ASTHENIA [None]
